FAERS Safety Report 5066466-1 (Version None)
Quarter: 2006Q3

REPORT INFORMATION
  Report Type: 
  Country: None (occurrence: None)
  Receive Date: 20060717
  Receipt Date: 20020611
  Transmission Date: 20061208
  Serious: Yes (Hospitalization, Other)
  Sender: FDA-Public Use
  Company Number: 2002-06-1897

PATIENT
  Age: 61 Year
  Sex: Male

DRUGS (13)
  1. INTEGRILIN [Suspect]
     Dosage: SEE IMAGE
     Route: 042
  2. ENOXAPARIN SODIUM [Suspect]
     Indication: DRUG USE FOR UNKNOWN INDICATION
  3. ASPIRIN [Concomitant]
  4. ATENOLOL [Concomitant]
  5. FUROSEMIDE [Concomitant]
  6. LISINOPRIL [Concomitant]
  7. ISOSORBIDE MONONITRATE 120 MG [Concomitant]
  8. WARFARIN SODIUM [Concomitant]
  9. WARFARIN 2. 5MG [Concomitant]
  10. CERIVASTATIN SODIUM 0.4 MG [Concomitant]
  11. NPH INSULIN [Concomitant]
  12. LISPRO INSULIN [Concomitant]
  13. LANSOPRAZOLE [Concomitant]

REACTIONS (5)
  - ACUTE CORONARY SYNDROME [None]
  - CHILLS [None]
  - INFUSION RELATED REACTION [None]
  - PAIN [None]
  - THROMBOCYTOPENIA [None]
